FAERS Safety Report 24136796 (Version 1)
Quarter: 2024Q3

REPORT INFORMATION
  Report Type: Spontaneous
  Country: TR (occurrence: TR)
  Receive Date: 20240725
  Receipt Date: 20240725
  Transmission Date: 20241016
  Serious: Yes (Death, Other)
  Sender: SANOFI AVENTIS
  Company Number: TR-SA-2024SA214873

PATIENT
  Age: 72 Year
  Sex: Male

DRUGS (5)
  1. ENOXAPARIN SODIUM [Suspect]
     Active Substance: ENOXAPARIN SODIUM
     Dosage: UNK
  2. FUROSEMIDE [Concomitant]
     Active Substance: FUROSEMIDE
     Indication: Cardiac failure
     Dosage: UNK
  3. ALDACTAZIDE [Concomitant]
     Active Substance: HYDROCHLOROTHIAZIDE\SPIRONOLACTONE
     Indication: Cardiac failure
     Dosage: UNK
  4. BISOPROLOL [Concomitant]
     Active Substance: BISOPROLOL\BISOPROLOL FUMARATE
     Indication: Cardiac failure
     Dosage: UNK
  5. ASPIRIN [Concomitant]
     Active Substance: ASPIRIN
     Indication: Cardiac failure
     Dosage: UNK

REACTIONS (12)
  - Pulmonary haemorrhage [Fatal]
  - Rash [Fatal]
  - Confusional state [Fatal]
  - Mouth haemorrhage [Fatal]
  - Gingival bleeding [Fatal]
  - Thrombocytopenia [Fatal]
  - Anaemia [Fatal]
  - Pleural effusion [Fatal]
  - Dyspnoea [Fatal]
  - Rales [Fatal]
  - Hypoxia [Fatal]
  - Lung consolidation [Fatal]
